FAERS Safety Report 24218715 (Version 1)
Quarter: 2024Q3

REPORT INFORMATION
  Report Type: Spontaneous
  Country: US (occurrence: None)
  Receive Date: 20240816
  Receipt Date: 20240816
  Transmission Date: 20241016
  Serious: Yes (Hospitalization)
  Sender: Public
  Company Number: None

PATIENT
  Sex: Male

DRUGS (4)
  1. GENGRAF [Suspect]
     Active Substance: CYCLOSPORINE
     Indication: Renal transplant
     Route: 048
     Dates: start: 20190122
  2. KENALOG-40 [Concomitant]
  3. MYCOPHENOLAT [Concomitant]
  4. MYCOPENOLATE MOFETIL [Concomitant]

REACTIONS (2)
  - Renal cancer [None]
  - Nephrectomy [None]
